FAERS Safety Report 21733360 (Version 4)
Quarter: 2023Q2

REPORT INFORMATION
  Report Type: Report from Study
  Country: US (occurrence: US)
  Receive Date: 20221215
  Receipt Date: 20230613
  Transmission Date: 20230722
  Serious: Yes (Hospitalization, Other)
  Sender: FDA-Public Use
  Company Number: US-ARGENX-2022-ARGX-US002673

PATIENT
  Sex: Female

DRUGS (1)
  1. VYVGART [Suspect]
     Active Substance: EFGARTIGIMOD ALFA-FCAB
     Indication: Product used for unknown indication
     Dosage: UNK
     Route: 065

REACTIONS (11)
  - Anaemia [Unknown]
  - Thrombosis [Unknown]
  - Therapy non-responder [Unknown]
  - Muscular weakness [Unknown]
  - Jaw disorder [Unknown]
  - Speech disorder [Unknown]
  - Eyelid ptosis [Unknown]
  - Condition aggravated [Unknown]
  - Fall [Unknown]
  - Productive cough [Unknown]
  - Gastroenteritis viral [Unknown]
